FAERS Safety Report 13372667 (Version 1)
Quarter: 2017Q1

REPORT INFORMATION
  Report Type: Spontaneous
  Country: IT (occurrence: IT)
  Receive Date: 20170327
  Receipt Date: 20170327
  Transmission Date: 20170429
  Serious: Yes (Death, Other)
  Sender: FDA-Public Use
  Company Number: IT-TEVA-753683ACC

PATIENT
  Age: 70 Year
  Sex: Male

DRUGS (4)
  1. DEXAMETHASONE. [Concomitant]
     Active Substance: DEXAMETHASONE
     Indication: PLASMA CELL MYELOMA
     Dosage: (DAYS 1, 2, 4, 5, 8, 9, 11 AND 12)
     Route: 042
  2. BENDAMUSTINE HYDROCHLORIDE. [Suspect]
     Active Substance: BENDAMUSTINE HYDROCHLORIDE
     Indication: PLASMA CELL MYELOMA
     Dosage: (DAYS 1 AND 2)
     Route: 042
  3. BORTEZOMIB [Concomitant]
     Active Substance: BORTEZOMIB
     Indication: PLASMA CELL MYELOMA
     Dosage: 1.3 MG/MQ, (DAYS 1, 4, 8 AND 11)
     Route: 058
  4. PEGFILGRASTIM [Concomitant]
     Active Substance: PEGFILGRASTIM
     Indication: PLASMA CELL MYELOMA
     Dosage: (DAY 4 AND EVERY 28 DAYS)
     Route: 058

REACTIONS (2)
  - Cachexia [Fatal]
  - Prescribed underdose [Unknown]
